FAERS Safety Report 22396622 (Version 1)
Quarter: 2023Q2

REPORT INFORMATION
  Report Type: Spontaneous
  Country: US (occurrence: US)
  Receive Date: 20230601
  Receipt Date: 20230601
  Transmission Date: 20230721
  Serious: No
  Sender: FDA-Public Use
  Company Number: US-APIL-2309673US

PATIENT
  Sex: Female

DRUGS (1)
  1. RESTASIS [Suspect]
     Active Substance: CYCLOSPORINE
     Indication: Dry eye
     Dosage: UNK
     Dates: start: 202301

REACTIONS (3)
  - Lacrimation increased [Unknown]
  - Circumstance or information capable of leading to medication error [Unknown]
  - Device issue [Unknown]

NARRATIVE: CASE EVENT DATE: 20230101
